FAERS Safety Report 7525189-7 (Version None)
Quarter: 2011Q2

REPORT INFORMATION
  Report Type: 
  Country: None (occurrence: None)
  Receive Date: 20110606
  Receipt Date: 20110603
  Transmission Date: 20111010
  Serious: Yes (Life-Threatening, Hospitalization)
  Sender: FDA-Public Use
  Company Number: US-B.I. PHARMACEUTICALS,INC./RIDGEFIELD-2011-BP-12539BP

PATIENT
  Age: 73 Year
  Sex: Female
  Weight: 57.6 kg

DRUGS (8)
  1. ALENDRONATE SODIUM [Concomitant]
  2. PRADAXA [Suspect]
     Indication: ATRIAL FIBRILLATION
     Dosage: 300 MG
     Dates: start: 20110401, end: 20110506
  3. METOPROLOL TARTRATE [Concomitant]
  4. VITAMIN D [Concomitant]
  5. MULTIPLE VITAMIN [Concomitant]
  6. SIMVASTATIN [Concomitant]
     Dosage: 20 MG
  7. AMLODIPINE [Concomitant]
     Dosage: 2.5 MG
  8. CALCIUM CARBONATE [Concomitant]

REACTIONS (1)
  - PULMONARY EMBOLISM [None]
